FAERS Safety Report 4528838-0 (Version None)
Quarter: 2004Q4

REPORT INFORMATION
  Report Type: 
  Country: None (occurrence: None)
  Receive Date: 20041214
  Receipt Date: 20041119
  Transmission Date: 20050328
  Serious: Yes (Death)
  Sender: FDA-Public Use
  Company Number: F01200402712

PATIENT
  Age: 73 Year
  Sex: Male

DRUGS (9)
  1. (OXALIPLATIN) - SOLUTION - 80 MG/M2 [Suspect]
     Indication: COLON CANCER
     Dosage: 80 MG/M2 Q2W
     Route: 042
     Dates: start: 20040826, end: 20040826
  2. (FLUOROURACIL) - SOLUTION - 3000 MG/M2 [Suspect]
     Dosage: 3000 MG/M2
     Route: 042
     Dates: start: 20040826, end: 20040828
  3. EUGLUCON (GLIBENCLAMIDE) [Concomitant]
  4. EUTIROX (LEVOTHYROXINE) [Concomitant]
  5. ADOFEN (FLUOXETINE) [Concomitant]
  6. BOREA (MEGESTROL ACETATE) [Concomitant]
  7. LORAZEPAM [Concomitant]
  8. TERMALGIN (PARACETAMOL) [Concomitant]
  9. DYNAMOGEN (ASPARTATE NOS) [Concomitant]

REACTIONS (17)
  - ABDOMINAL DISCOMFORT [None]
  - BLOOD PRESSURE DIASTOLIC DECREASED [None]
  - BREATH SOUNDS ABSENT [None]
  - DISORIENTATION [None]
  - DYSPNOEA [None]
  - GENERAL PHYSICAL HEALTH DETERIORATION [None]
  - GLYCOSURIA [None]
  - HYPERGLYCAEMIA [None]
  - KETONURIA [None]
  - METABOLIC ACIDOSIS [None]
  - OEDEMA [None]
  - RECTAL TENESMUS [None]
  - RENAL FAILURE [None]
  - SEPTIC SHOCK [None]
  - STREPTOCOCCAL SEPSIS [None]
  - TACHYCARDIA [None]
  - WEIGHT DECREASED [None]
